FAERS Safety Report 6149765-1 (Version None)
Quarter: 2009Q2

REPORT INFORMATION
  Report Type: 
  Country: None (occurrence: None)
  Receive Date: 20090402
  Receipt Date: 20090129
  Transmission Date: 20091009
  Serious: Yes (Other)
  Sender: FDA-Public Use
  Company Number: 2009SU0028

PATIENT
  Age: 55 Year
  Sex: Male
  Weight: 92.9874 kg

DRUGS (4)
  1. SULAR [Suspect]
     Indication: HYPERTENSION
     Dosage: 34 MG, DAILY
     Dates: start: 20080701
  2. MICARDIS/HCTZ [Concomitant]
  3. . [Concomitant]
  4. COREG [Concomitant]

REACTIONS (1)
  - DRUG INEFFECTIVE [None]
